FAERS Safety Report 18661815 (Version 1)
Quarter: 2020Q4

REPORT INFORMATION
  Report Type: Spontaneous
  Country: NL (occurrence: NL)
  Receive Date: 20201224
  Receipt Date: 20201224
  Transmission Date: 20210114
  Serious: Yes (Other)
  Sender: FDA-Public Use
  Company Number: NL-TEVA-2020-NL-1860695

PATIENT
  Sex: Male
  Weight: 89 kg

DRUGS (1)
  1. ATORVASTATINE TABLET 10MG / BRAND NAME NOT SPECIFIED [Suspect]
     Active Substance: ATORVASTATIN
     Indication: HYPERCHOLESTEROLAEMIA
     Dosage: 10 MILLIGRAM DAILY; 1 PIECE
     Dates: start: 202003, end: 20200928

REACTIONS (1)
  - Muscle rupture [Recovered/Resolved]
